FAERS Safety Report 5615158-6 (Version None)
Quarter: 2008Q1

REPORT INFORMATION
  Report Type: 
  Country: None (occurrence: None)
  Receive Date: 20080206
  Receipt Date: 20070911
  Transmission Date: 20080703
  Serious: No
  Sender: FDA-Public Use
  Company Number: A0680916A

PATIENT
  Sex: Male

DRUGS (1)
  1. ARIXTRA [Suspect]
     Dosage: 5MG PER DAY
     Route: 058
     Dates: start: 20070905, end: 20070910

REACTIONS (1)
  - BLOOD BLISTER [None]
